FAERS Safety Report 7265297-1 (Version None)
Quarter: 2011Q1

REPORT INFORMATION
  Report Type: 
  Country: None (occurrence: None)
  Receive Date: 20110131
  Receipt Date: 20101217
  Transmission Date: 20110831
  Serious: Yes (Death, Hospitalization, Other)
  Sender: FDA-Public Use
  Company Number: US-BAXTER-2009BH008320

PATIENT
  Age: 78 Year
  Sex: Male
  Weight: 54 kg

DRUGS (33)
  1. HEPARIN SODIUM INJECTION [Suspect]
     Route: 042
     Dates: start: 20080104, end: 20080104
  2. HEPARIN SODIUM INJECTION [Suspect]
     Route: 042
     Dates: start: 20071118, end: 20071118
  3. HEPARIN SODIUM INJECTION [Suspect]
     Route: 065
     Dates: start: 20071001
  4. HEPARIN SODIUM INJECTION [Suspect]
     Route: 065
  5. METOPROLOL [Concomitant]
     Indication: PRODUCT USED FOR UNKNOWN INDICATION
     Route: 065
  6. LEVOTHYROXINE SODIUM [Concomitant]
     Indication: PRODUCT USED FOR UNKNOWN INDICATION
     Route: 065
  7. MINITRAN [Concomitant]
     Indication: PRODUCT USED FOR UNKNOWN INDICATION
     Route: 065
  8. HEPARIN SODIUM INJECTION [Suspect]
     Indication: ARTERIAL BYPASS OPERATION
     Route: 010
     Dates: start: 20031127, end: 20071226
  9. HEPARIN SODIUM INJECTION [Suspect]
     Indication: ENDARTERECTOMY
     Route: 010
     Dates: start: 20031127, end: 20071226
  10. HEPARIN SODIUM INJECTION [Suspect]
     Route: 065
  11. PROCRIT [Concomitant]
     Indication: PRODUCT USED FOR UNKNOWN INDICATION
     Route: 065
  12. HEPARIN SODIUM INJECTION [Suspect]
     Route: 042
     Dates: start: 20071118, end: 20071118
  13. HEPARIN SODIUM INJECTION [Suspect]
     Route: 042
     Dates: start: 20071118, end: 20071118
  14. HEPARIN SODIUM INJECTION [Suspect]
     Route: 065
  15. PHOSLO [Concomitant]
     Indication: PRODUCT USED FOR UNKNOWN INDICATION
     Route: 065
  16. ZANTAC [Concomitant]
     Indication: PRODUCT USED FOR UNKNOWN INDICATION
     Route: 065
  17. HEPARIN SODIUM INJECTION [Suspect]
     Route: 042
     Dates: start: 20080104, end: 20080104
  18. HEPARIN SODIUM INJECTION [Suspect]
     Route: 065
     Dates: start: 20071001
  19. HEPARIN SODIUM INJECTION [Suspect]
     Route: 065
     Dates: start: 20071001
  20. BOOST [Concomitant]
     Indication: PRODUCT USED FOR UNKNOWN INDICATION
     Route: 065
  21. PREVACID [Concomitant]
     Indication: PRODUCT USED FOR UNKNOWN INDICATION
     Route: 065
  22. HEPARIN SODIUM INJECTION [Suspect]
     Indication: HAEMODIALYSIS
     Route: 010
     Dates: start: 20031127, end: 20071226
  23. HEPARIN SODIUM INJECTION [Suspect]
     Route: 042
     Dates: start: 20080104, end: 20080104
  24. HEPARIN SODIUM INJECTION [Suspect]
     Route: 042
     Dates: start: 20080104, end: 20080104
  25. HEPARIN SODIUM INJECTION [Suspect]
     Route: 042
     Dates: start: 20071118, end: 20071118
  26. HEPARIN SODIUM INJECTION [Suspect]
     Route: 065
     Dates: start: 20071001
  27. HEPARIN SODIUM INJECTION [Suspect]
     Route: 065
  28. ZEMPLAR [Concomitant]
     Indication: PRODUCT USED FOR UNKNOWN INDICATION
     Route: 065
  29. DIALYVITE [Concomitant]
     Indication: PRODUCT USED FOR UNKNOWN INDICATION
     Route: 065
  30. HEPARIN SODIUM INJECTION [Suspect]
     Indication: CLOT RETRACTION
     Route: 010
     Dates: start: 20031127, end: 20071226
  31. LISINOPRIL [Concomitant]
     Indication: PRODUCT USED FOR UNKNOWN INDICATION
     Route: 065
  32. MULTI-VITAMINS [Concomitant]
     Indication: PRODUCT USED FOR UNKNOWN INDICATION
     Route: 065
  33. VICODIN [Concomitant]
     Indication: PRODUCT USED FOR UNKNOWN INDICATION
     Route: 065

REACTIONS (19)
  - STAPHYLOCOCCAL INFECTION [None]
  - ANAEMIA [None]
  - THROMBOSIS [None]
  - FACE OEDEMA [None]
  - FEMORAL ARTERIAL STENOSIS [None]
  - FEMORAL ARTERY OCCLUSION [None]
  - FAECES DISCOLOURED [None]
  - HAEMORRHAGE [None]
  - THROMBOCYTOPENIA [None]
  - ASTHENIA [None]
  - VENOUS STENOSIS [None]
  - ASCITES [None]
  - HYPERTENSION [None]
  - METABOLIC ACIDOSIS [None]
  - RENAL FAILURE CHRONIC [None]
  - CARDIAC ARREST [None]
  - RESPIRATORY FAILURE [None]
  - PLEURAL EFFUSION [None]
  - CHOLELITHIASIS [None]
